FAERS Safety Report 23362836 (Version 1)
Quarter: 2024Q1

REPORT INFORMATION
  Report Type: Spontaneous
  Country: CA (occurrence: CA)
  Receive Date: 20240103
  Receipt Date: 20240103
  Transmission Date: 20240409
  Serious: Yes (Life-Threatening, Hospitalization, Other)
  Sender: FDA-Public Use
  Company Number: CA-PFIZER INC-202300452704

PATIENT
  Age: 4 Year
  Sex: Male

DRUGS (2)
  1. METHOTREXATE SODIUM [Suspect]
     Active Substance: METHOTREXATE SODIUM
     Indication: Non-Hodgkin^s lymphoma
     Dosage: 17.5 MG
     Route: 048
  2. MERCAPTOPURINE [Suspect]
     Active Substance: MERCAPTOPURINE
     Indication: Non-Hodgkin^s lymphoma
     Dosage: 60 MG, DAILY
     Route: 048

REACTIONS (1)
  - Febrile neutropenia [Recovered/Resolved]
